FAERS Safety Report 12870417 (Version 1)
Quarter: 2016Q4

REPORT INFORMATION
  Report Type: Spontaneous
  Country: US (occurrence: US)
  Receive Date: 20161021
  Receipt Date: 20161021
  Transmission Date: 20170207
  Serious: No
  Sender: FDA-Public Use
  Company Number: US-SAGENTPRD-2016-US-000036

PATIENT
  Sex: 0

DRUGS (2)
  1. NO DRUG NAME [Concomitant]
  2. HEPARIN SODIUM INJECTION, 1 ML, 5000 UNIT/ML [Suspect]
     Active Substance: HEPARIN SODIUM
     Dosage: 10,000 U FLUSH

REACTIONS (1)
  - No adverse event [Unknown]
